FAERS Safety Report 25499121 (Version 1)
Quarter: 2025Q3

REPORT INFORMATION
  Report Type: Spontaneous
  Country: CA (occurrence: CA)
  Receive Date: 20250701
  Receipt Date: 20250701
  Transmission Date: 20251021
  Serious: Yes (Other)
  Sender: RECKITT BENCKISER
  Company Number: CA-INDIVIOR US-INDV-165424-2025

PATIENT
  Age: 41 Year
  Sex: Male

DRUGS (37)
  1. BUPRENORPHINE\NALOXONE [Suspect]
     Active Substance: BUPRENORPHINE\NALOXONE
     Indication: Pain
     Dosage: 16 MILLIGRAM, QD (DAY 07)
     Route: 060
  2. BUPRENORPHINE\NALOXONE [Suspect]
     Active Substance: BUPRENORPHINE\NALOXONE
     Indication: Drug dependence
     Route: 060
  3. BUPRENORPHINE\NALOXONE [Suspect]
     Active Substance: BUPRENORPHINE\NALOXONE
     Dosage: 16 MILLIGRAM, QD
     Route: 060
  4. BUPRENORPHINE\NALOXONE [Suspect]
     Active Substance: BUPRENORPHINE\NALOXONE
     Indication: Pain
     Dosage: 1 MILLIGRAM, QD (DAY 01)
     Route: 060
  5. BUPRENORPHINE\NALOXONE [Suspect]
     Active Substance: BUPRENORPHINE\NALOXONE
     Indication: Drug dependence
     Dosage: 1 MILLIGRAM, BID (DAY 02)
     Route: 060
  6. BUPRENORPHINE\NALOXONE [Suspect]
     Active Substance: BUPRENORPHINE\NALOXONE
     Dosage: 2 MILLIGRAM, BID (DAY 03)
     Route: 060
  7. BUPRENORPHINE\NALOXONE [Suspect]
     Active Substance: BUPRENORPHINE\NALOXONE
     Dosage: 2 MILLIGRAM, TID (DAY 04)
     Route: 060
  8. BUPRENORPHINE\NALOXONE [Suspect]
     Active Substance: BUPRENORPHINE\NALOXONE
     Dosage: 4 MILLIGRAM, BID (DAY 05)
     Route: 060
  9. BUPRENORPHINE\NALOXONE [Suspect]
     Active Substance: BUPRENORPHINE\NALOXONE
     Dosage: 12 MILLIGRAM, QD (DAY 06)
     Route: 060
  10. BUPRENORPHINE [Suspect]
     Active Substance: BUPRENORPHINE
     Indication: Drug dependence
     Dosage: 300 MILLIGRAM, QMO (FIRST INJECTION)
     Route: 058
  11. BUPRENORPHINE [Suspect]
     Active Substance: BUPRENORPHINE
     Dosage: 300 MILLIGRAM, QMO (SECOND INJECTION)
     Route: 058
  12. BUPRENORPHINE [Suspect]
     Active Substance: BUPRENORPHINE
     Indication: Drug dependence
     Dosage: 100 MILLIGRAM, QMO (THIRD INJECTION)
     Route: 058
  13. BUPRENORPHINE [Suspect]
     Active Substance: BUPRENORPHINE
     Dosage: 100 MILLIGRAM, QMO (FOURTH INJECTION)
     Route: 058
  14. BUPRENORPHINE [Suspect]
     Active Substance: BUPRENORPHINE
     Dosage: 100 MILLIGRAM, QMO (FIFTH INJECTION)
     Route: 058
  15. BUPRENORPHINE [Suspect]
     Active Substance: BUPRENORPHINE
     Dosage: 100 MILLIGRAM, QMO (SIXTH INJECTION)
     Route: 058
  16. IVACAFTOR\LUMACAFTOR [Concomitant]
     Active Substance: IVACAFTOR\LUMACAFTOR
     Indication: Cystic fibrosis
     Dosage: 400/250 MG; Q12H
     Route: 048
  17. DORNASE ALFA [Concomitant]
     Active Substance: DORNASE ALFA
     Indication: Lung disorder
     Dosage: 2.5 MILLIGRAM, BID
  18. FORMOTEROL\MOMETASONE [Concomitant]
     Active Substance: FORMOTEROL\MOMETASONE
     Indication: Lung disorder
     Dosage: 600 MICROGRAMS/15 MICROGRAMS, BID
  19. TIOTROPIUM [Concomitant]
     Active Substance: TIOTROPIUM
     Indication: Lung disorder
     Dosage: 5 MICROGRAM, QD
  20. ALBUTEROL [Concomitant]
     Active Substance: ALBUTEROL
     Indication: Lung disorder
     Dosage: 200 MICROGRAM, QID, PRN
  21. AZTREONAM [Concomitant]
     Active Substance: AZTREONAM
     Indication: Pseudomonas infection
     Dosage: 75 MILLIGRAM, TID, ALTERNATING MONTHS ON/OFF
  22. ACETAMINOPHEN [Concomitant]
     Active Substance: ACETAMINOPHEN
     Indication: Pain
     Dosage: 975 MILLIGRAM, QID
     Route: 048
  23. GABAPENTIN [Concomitant]
     Active Substance: GABAPENTIN
     Indication: Pain
     Dosage: 900 MILLIGRAM, TID
     Route: 048
  24. HYDROMORPHONE [Concomitant]
     Active Substance: HYDROMORPHONE
     Indication: Pain
     Dosage: 3 MILLIGRAM, Q4H (DISCONTINUED ON DAY 7 OF THE BUPRENORPHINE/NALOXONE TITRATION)
     Route: 058
  25. CLONIDINE [Concomitant]
     Active Substance: CLONIDINE
     Indication: Drug withdrawal syndrome
     Dosage: 0.05 MILLIGRAM, TID, PRN
     Route: 048
  26. VITAMIN D3 [Concomitant]
     Active Substance: CHOLECALCIFEROL
     Indication: Vitamin supplementation
     Dosage: 4000 INTERNATIONAL UNIT, QD
     Route: 048
  27. VITAMIN E [Concomitant]
     Active Substance: .ALPHA.-TOCOPHEROL
     Indication: Vitamin supplementation
     Dosage: 200 INTERNATIONAL UNIT, QD
     Route: 048
  28. VITAMINS NOS [Concomitant]
     Active Substance: VITAMINS
     Indication: Vitamin supplementation
     Dosage: 1 TABLET, QD
     Route: 048
  29. FERROUS FUMARATE [Concomitant]
     Active Substance: FERROUS FUMARATE
     Indication: Vitamin supplementation
     Dosage: 100 MILLIGRAM, BID
     Route: 048
  30. CREON [Concomitant]
     Active Substance: PANCRELIPASE AMYLASE\PANCRELIPASE LIPASE\PANCRELIPASE PROTEASE
     Indication: Pancreatic failure
     Route: 048
  31. ONDANSETRON [Concomitant]
     Active Substance: ONDANSETRON
     Indication: Nausea
     Dosage: 4 MILLIGRAM, Q8H
     Route: 042
  32. ONDANSETRON [Concomitant]
     Active Substance: ONDANSETRON
     Indication: Vomiting
  33. DIMENHYDRINATE [Concomitant]
     Active Substance: DIMENHYDRINATE
     Indication: Nausea
     Route: 042
  34. DIMENHYDRINATE [Concomitant]
     Active Substance: DIMENHYDRINATE
     Indication: Vomiting
  35. PANTOPRAZOLE [Concomitant]
     Active Substance: PANTOPRAZOLE
     Indication: Gastrooesophageal reflux disease
     Dosage: 40 MILLIGRAM, Q12H
     Route: 042
  36. VENLAFAXINE [Concomitant]
     Active Substance: VENLAFAXINE HYDROCHLORIDE
     Indication: Anxiety disorder
     Dosage: 75 MILLIGRAM, QD
     Route: 048
  37. ZOPICLONE [Concomitant]
     Active Substance: ZOPICLONE
     Indication: Insomnia
     Route: 048

REACTIONS (7)
  - Pleural effusion [Unknown]
  - Empyema [Unknown]
  - Off label use [Recovered/Resolved]
  - Inappropriate schedule of product discontinuation [Recovered/Resolved]
  - Inappropriate schedule of product administration [Recovered/Resolved]
  - Toothache [Unknown]
  - Wrong technique in product usage process [Recovered/Resolved]
